FAERS Safety Report 14303183 (Version 6)
Quarter: 2018Q1

REPORT INFORMATION
  Report Type: Spontaneous
  Country: ES (occurrence: ES)
  Receive Date: 20171219
  Receipt Date: 20180319
  Transmission Date: 20180509
  Serious: Yes (Hospitalization)
  Sender: FDA-Public Use
  Company Number: ES-PFIZER INC-2017539817

PATIENT
  Age: 75 Year
  Sex: Female

DRUGS (1)
  1. DAPTOMYCIN. [Suspect]
     Active Substance: DAPTOMYCIN
     Dosage: UNK
     Dates: start: 20171118, end: 20171123

REACTIONS (3)
  - Blood creatine phosphokinase increased [Unknown]
  - Pneumonitis [Unknown]
  - Eosinophilia [Unknown]

NARRATIVE: CASE EVENT DATE: 20171122
